FAERS Safety Report 22345589 (Version 4)
Quarter: 2023Q2

REPORT INFORMATION
  Report Type: Spontaneous
  Country: AT (occurrence: AT)
  Receive Date: 20230519
  Receipt Date: 20230629
  Transmission Date: 20230721
  Serious: Yes (Hospitalization)
  Sender: FDA-Public Use
  Company Number: DE-DAIICHI SANKYO, INC.-DSE-2023-119210

PATIENT
  Age: 65 Year
  Sex: Male

DRUGS (2)
  1. EDOXABAN TOSYLATE [Suspect]
     Active Substance: EDOXABAN TOSYLATE
     Indication: Atrial fibrillation
     Dosage: 60 MG
     Route: 065
     Dates: start: 2020, end: 202304
  2. EDOXABAN TOSYLATE [Suspect]
     Active Substance: EDOXABAN TOSYLATE
     Indication: Cerebrovascular accident prophylaxis

REACTIONS (1)
  - Thrombectomy [Recovering/Resolving]

NARRATIVE: CASE EVENT DATE: 20230401
